FAERS Safety Report 19816058 (Version 2)
Quarter: 2021Q3

REPORT INFORMATION
  Report Type: Spontaneous
  Country: CZ (occurrence: CZ)
  Receive Date: 20210910
  Receipt Date: 20210922
  Transmission Date: 20211014
  Serious: Yes (Other)
  Sender: FDA-Public Use
  Company Number: CZ-VERTEX PHARMACEUTICALS-2021-012559

PATIENT
  Age: 19 Year
  Sex: Male

DRUGS (12)
  1. PANZYTRAT [PANCREATIN] [Concomitant]
     Active Substance: PANCRELIPASE
     Indication: CYSTIC FIBROSIS
  2. KAFTRIO [Suspect]
     Active Substance: ELEXACAFTOR\IVACAFTOR\TEZACAFTOR
     Indication: CYSTIC FIBROSIS
     Dosage: 2 TABLET IN AM (75MG IVA/50MG TEZA/100MG ELEXA)
     Route: 048
     Dates: start: 20210802
  3. SERETIDE [Concomitant]
     Active Substance: FLUTICASONE PROPIONATE\SALMETEROL XINAFOATE
  4. AVAMYS [Concomitant]
     Active Substance: FLUTICASONE FUROATE
  5. EXACYL [Concomitant]
     Active Substance: TRANEXAMIC ACID
     Indication: CYSTIC FIBROSIS
  6. KALYDECO [Suspect]
     Active Substance: IVACAFTOR
     Indication: CYSTIC FIBROSIS
     Dosage: 0?1?1
     Route: 048
     Dates: start: 20210802
  7. VENTOLIN [Concomitant]
     Active Substance: ALBUTEROL SULFATE
  8. KANAVIT [PHYTOMENADIONE] [Concomitant]
  9. VIGANTOL [COLECALCIFEROL] [Concomitant]
     Active Substance: CHOLECALCIFEROL
  10. PULMOZYME [Concomitant]
     Active Substance: DORNASE ALFA
     Indication: CYSTIC FIBROSIS
  11. COLOMYCIN [COLISTIMETHATE SODIUM] [Concomitant]
     Active Substance: COLISTIMETHATE SODIUM
     Indication: CYSTIC FIBROSIS
  12. PARAVIT CF [Concomitant]

REACTIONS (1)
  - Testicular pain [Recovered/Resolved]

NARRATIVE: CASE EVENT DATE: 20210810
